FAERS Safety Report 15094999 (Version 2)
Quarter: 2018Q4

REPORT INFORMATION
  Report Type: Spontaneous
  Country: MY (occurrence: MY)
  Receive Date: 20180702
  Receipt Date: 20181004
  Transmission Date: 20190204
  Serious: Yes (Hospitalization, Other)
  Sender: FDA-Public Use
  Company Number: MY-SUN PHARMACEUTICAL INDUSTRIES LTD-2018R1-176920

PATIENT
  Age: 36 Year
  Sex: Male

DRUGS (3)
  1. NIAO SUAN WAN [Interacting]
     Active Substance: HERBALS
     Indication: PAIN IN EXTREMITY
     Dosage: TOOK 2 PILLS OF THE PRODUCT IN MORNING AND ONE PILL AT NIGHT EVERY DAY UPTO HIS HOSPITALIZATION
     Route: 065
  2. DEXAMETHASONE. [Suspect]
     Active Substance: DEXAMETHASONE
     Indication: PAIN IN EXTREMITY
     Dosage: UNK
     Route: 065
  3. OLANZAPINE. [Concomitant]
     Active Substance: OLANZAPINE
     Indication: BIPOLAR I DISORDER
     Dosage: STAT DOSE OF 5MG
     Route: 065

REACTIONS (3)
  - Mania [Recovered/Resolved]
  - Drug interaction [Unknown]
  - Poor quality product administered [Unknown]
